FAERS Safety Report 22605659 (Version 1)
Quarter: 2023Q2

REPORT INFORMATION
  Report Type: Spontaneous
  Country: GB (occurrence: GB)
  Receive Date: 20230615
  Receipt Date: 20230615
  Transmission Date: 20230721
  Serious: Yes (Other)
  Sender: FDA-Public Use
  Company Number: GB-MHRA-MED-202306071840367590-SPNBM

PATIENT
  Age: 50 Year
  Sex: Female
  Weight: 76 kg

DRUGS (2)
  1. NORETHINDRONE [Suspect]
     Active Substance: NORETHINDRONE
     Indication: Heavy menstrual bleeding
     Dosage: 5 MG, 3X/DAY
     Dates: start: 20230525
  2. ESTRADIOL [Suspect]
     Active Substance: ESTRADIOL
     Indication: Heavy menstrual bleeding
     Dosage: 5 MG, 3X/DAY
     Dates: start: 20230525

REACTIONS (5)
  - Ascites [Unknown]
  - Weight increased [Not Recovered/Not Resolved]
  - Pruritus [Not Recovered/Not Resolved]
  - Fluid retention [Unknown]
  - Off label use [Unknown]

NARRATIVE: CASE EVENT DATE: 20230525
